FAERS Safety Report 10057079 (Version 2)
Quarter: 2014Q2

REPORT INFORMATION
  Report Type: Spontaneous
  Country: IT (occurrence: IT)
  Receive Date: 20140403
  Receipt Date: 20140528
  Transmission Date: 20141212
  Serious: Yes (Other)
  Sender: FDA-Public Use
  Company Number: PHHY2014IT037746

PATIENT
  Age: 85 Year
  Sex: Female

DRUGS (2)
  1. MIRTAZAPINE [Suspect]
     Dosage: 7.5 MG, ONCE/SINGLE
     Route: 048
     Dates: start: 20131201, end: 20131201
  2. MOTILIUM [Concomitant]
     Dosage: 2.5 MG, UNK
     Route: 048
     Dates: start: 20131201, end: 20131201

REACTIONS (2)
  - Medication error [Recovered/Resolved]
  - Psychomotor skills impaired [Recovered/Resolved]
